FAERS Safety Report 7692180-X (Version None)
Quarter: 2011Q3

REPORT INFORMATION
  Report Type: 
  Country: None (occurrence: None)
  Receive Date: 20110818
  Receipt Date: 20110812
  Transmission Date: 20111222
  Serious: Yes (Other)
  Sender: FDA-Public Use
  Company Number: PHHO2011DE10001

PATIENT
  Sex: Female

DRUGS (3)
  1. TASIGNA [Suspect]
     Dosage: 300 MG, BID
     Route: 048
     Dates: start: 20110707
  2. TASIGNA [Suspect]
     Indication: CHRONIC MYELOID LEUKAEMIA
     Dosage: 300 MG, BID
     Route: 048
     Dates: start: 20100924, end: 20110609
  3. TASIGNA [Suspect]
     Dosage: NO TREATMENT RECEIVED
     Dates: start: 20110610, end: 20110706

REACTIONS (1)
  - DEAFNESS [None]
